FAERS Safety Report 11973018 (Version 2)
Quarter: 2016Q1

REPORT INFORMATION
  Report Type: Report from Study
  Country: US (occurrence: US)
  Receive Date: 20160128
  Receipt Date: 20160211
  Transmission Date: 20160526
  Serious: Yes (Other)
  Sender: FDA-Public Use
  Company Number: US-GILEAD-2015-0189976

PATIENT
  Age: 78 Year
  Sex: Female

DRUGS (1)
  1. IDELALISIB [Suspect]
     Active Substance: IDELALISIB
     Indication: CHRONIC LYMPHOCYTIC LEUKAEMIA
     Dosage: 100 MG, BID
     Route: 048
     Dates: start: 20151120, end: 20160127

REACTIONS (13)
  - Decreased appetite [Unknown]
  - Drug ineffective [Unknown]
  - Pain in extremity [Unknown]
  - Night sweats [Unknown]
  - Pyrexia [Unknown]
  - Pain [Unknown]
  - Fatigue [Unknown]
  - Renal impairment [Unknown]
  - Weight decreased [Unknown]
  - Nausea [Not Recovered/Not Resolved]
  - Peripheral swelling [Unknown]
  - White blood cell count increased [Unknown]
  - Erythema [Unknown]

NARRATIVE: CASE EVENT DATE: 201511
